FAERS Safety Report 9931896 (Version 2)
Quarter: 2014Q1

REPORT INFORMATION
  Report Type: Spontaneous
  Country: DE (occurrence: DE)
  Receive Date: 20140228
  Receipt Date: 20140305
  Transmission Date: 20141002
  Serious: Yes (Other)
  Sender: FDA-Public Use
  Company Number: DE-ASTELLAS-2014US002029

PATIENT
  Sex: Female

DRUGS (1)
  1. TARCEVA [Suspect]
     Indication: NON-SMALL CELL LUNG CANCER
     Dosage: UNK
     Route: 065
     Dates: start: 2011

REACTIONS (3)
  - Nervous system disorder [Unknown]
  - Cerebral ischaemia [Unknown]
  - Visual impairment [Unknown]
